FAERS Safety Report 8170563-1 (Version None)
Quarter: 2012Q1

REPORT INFORMATION
  Report Type: 
  Country: None (occurrence: None)
  Receive Date: 20120228
  Receipt Date: 20120222
  Transmission Date: 20120608
  Serious: Yes (Other)
  Sender: FDA-Public Use
  Company Number: US-PFIZER INC-2012047669

PATIENT
  Age: 55 Year
  Sex: Female

DRUGS (1)
  1. GABAPENTIN [Suspect]
     Indication: NERVE INJURY
     Dosage: 400 MG, 2X/DAY
     Route: 048

REACTIONS (4)
  - PAIN [None]
  - HYPERTENSION [None]
  - DRUG INEFFECTIVE [None]
  - ATTENTION DEFICIT/HYPERACTIVITY DISORDER [None]
